FAERS Safety Report 25234864 (Version 2)
Quarter: 2025Q3

REPORT INFORMATION
  Report Type: Spontaneous
  Country: US (occurrence: US)
  Receive Date: 20250424
  Receipt Date: 20250725
  Transmission Date: 20251021
  Serious: Yes (Other)
  Sender: SPECGX
  Company Number: US-SPECGX-T202500796

PATIENT
  Age: 37 Year
  Sex: Male

DRUGS (20)
  1. METHADONE [Suspect]
     Active Substance: METHADONE HYDROCHLORIDE
     Indication: Drug use disorder
     Dosage: 210 MILLIGRAM, QD
     Route: 065
  2. OXYCODONE [Suspect]
     Active Substance: OXYCODONE
     Indication: Alcohol withdrawal syndrome
     Dosage: 10 MILLIGRAM, Q6H
     Route: 065
  3. OXYCODONE [Suspect]
     Active Substance: OXYCODONE
     Dosage: 5 MILLIGRAM, Q6H
     Route: 065
  4. OXYCODONE [Suspect]
     Active Substance: OXYCODONE
     Dosage: 40 MILLIGRAM, QD (DAY 1)
     Route: 065
  5. OXYCODONE [Suspect]
     Active Substance: OXYCODONE
     Dosage: 40 MILLIGRAM, QD (DAY 2)
     Route: 065
  6. OXYCODONE [Suspect]
     Active Substance: OXYCODONE
     Dosage: 40 MILLIGRAM, QD (DAY 3)
     Route: 065
  7. OXYCODONE [Suspect]
     Active Substance: OXYCODONE
     Dosage: 20 MILLIGRAM, QD (DAY 4)
     Route: 065
  8. OXYCODONE [Suspect]
     Active Substance: OXYCODONE
     Dosage: 15 MILLIGRAM, QD (DAY 5)
     Route: 065
  9. OXYCODONE [Suspect]
     Active Substance: OXYCODONE
     Dosage: 10 MILLIGRAM, QD (DAY 6)
     Route: 065
  10. OXYCODONE [Suspect]
     Active Substance: OXYCODONE
     Dosage: 15 MILLIGRAM, QD (DAY 7)
     Route: 065
  11. OXYCODONE [Suspect]
     Active Substance: OXYCODONE
     Dosage: 20 MILLIGRAM, QD (DAY 8)
     Route: 065
  12. OXYCODONE [Suspect]
     Active Substance: OXYCODONE
     Dosage: 20 MILLIGRAM, QD (DAY 9)
     Route: 065
  13. OXYCODONE [Suspect]
     Active Substance: OXYCODONE
     Dosage: 15 MILLIGRAM, QD (DAY 10)
     Route: 065
  14. OXYCODONE [Suspect]
     Active Substance: OXYCODONE
     Dosage: 5 MILLIGRAM, Q6H (RESUMED)
     Route: 065
  15. DEXTROAMPHETAMINE SACCHARATE, AMPHETAMINE ASPARTATE, DEXTROAMPHETAMINE [Suspect]
     Active Substance: AMPHETAMINE ASPARTATE\AMPHETAMINE SULFATE\DEXTROAMPHETAMINE SACCHARATE\DEXTROAMPHETAMINE SULFATE
     Indication: Product used for unknown indication
     Dosage: 20 MILLIGRAM, TID
     Route: 065
  16. BUPRENORPHINE [Suspect]
     Active Substance: BUPRENORPHINE
     Indication: Drug use disorder
     Dosage: 8 MILLIGRAM (DAY 11)
     Route: 060
  17. ALPRAZOLAM [Suspect]
     Active Substance: ALPRAZOLAM
     Indication: Social anxiety disorder
     Route: 065
  18. TRAZODONE [Suspect]
     Active Substance: TRAZODONE HYDROCHLORIDE
     Indication: Product used for unknown indication
     Dosage: 300 MILLIGRAM, QHS
     Route: 065
  19. ALCOHOL [Suspect]
     Active Substance: ALCOHOL
     Indication: Product used for unknown indication
     Dosage: 500 MILLILITER, QD
     Route: 065
  20. LORAZEPAM [Suspect]
     Active Substance: LORAZEPAM
     Indication: Alcohol withdrawal syndrome
     Route: 048

REACTIONS (10)
  - Acute hepatic failure [Unknown]
  - Encephalopathy [Unknown]
  - Condition aggravated [Unknown]
  - Alcohol use disorder [Unknown]
  - Electrocardiogram QT prolonged [Unknown]
  - Drug withdrawal syndrome [Recovered/Resolved]
  - Substance use [Unknown]
  - Blood calcium decreased [Unknown]
  - Fall [Unknown]
  - Alcohol withdrawal syndrome [Unknown]
